FAERS Safety Report 4738767-5 (Version None)
Quarter: 2005Q3

REPORT INFORMATION
  Report Type: 
  Country: None (occurrence: None)
  Receive Date: 20050805
  Receipt Date: 20050726
  Transmission Date: 20060218
  Serious: Yes (Hospitalization, Other)
  Sender: FDA-Public Use
  Company Number: BR-2005-015011

PATIENT
  Age: 33 Year
  Sex: Female

DRUGS (1)
  1. YASMIN [Suspect]
     Indication: ORAL CONTRACEPTION
     Dosage: 1 TAB(S), ORAL
     Route: 048
     Dates: start: 20050101, end: 20050630

REACTIONS (11)
  - BLOOD GLUCOSE ABNORMAL [None]
  - BLOOD TEST ABNORMAL [None]
  - CONDITION AGGRAVATED [None]
  - DIPLOPIA [None]
  - HEADACHE [None]
  - HYPOAESTHESIA [None]
  - INTRAOCULAR PRESSURE INCREASED [None]
  - MONOPLEGIA [None]
  - NAUSEA [None]
  - NECK PAIN [None]
  - URINE ANALYSIS ABNORMAL [None]
